FAERS Safety Report 12170097 (Version 1)
Quarter: 2016Q1

REPORT INFORMATION
  Report Type: Spontaneous
  Country: US (occurrence: US)
  Receive Date: 20160311
  Receipt Date: 20160311
  Transmission Date: 20160526
  Serious: No
  Sender: FDA-Public Use
  Company Number: US-009507513-1602USA013265

PATIENT
  Age: 27 Year
  Sex: Female
  Weight: 78.46 kg

DRUGS (1)
  1. NEXPLANON [Suspect]
     Active Substance: ETONOGESTREL
     Dosage: 1 ROD, UNK
     Route: 059
     Dates: start: 201412

REACTIONS (6)
  - Device difficult to use [Not Recovered/Not Resolved]
  - Irritability [Unknown]
  - Mood swings [Unknown]
  - Anger [Unknown]
  - Depressed mood [Unknown]
  - Nervousness [Unknown]

NARRATIVE: CASE EVENT DATE: 20160209
